FAERS Safety Report 7365562-3 (Version None)
Quarter: 2011Q1

REPORT INFORMATION
  Report Type: 
  Country: None (occurrence: None)
  Receive Date: 20110322
  Receipt Date: 20100917
  Transmission Date: 20110831
  Serious: Yes (Hospitalization, Other)
  Sender: FDA-Public Use
  Company Number: US-BAYER-200941198NA

PATIENT
  Sex: Female
  Weight: 95 kg

DRUGS (6)
  1. YAZ [Suspect]
     Route: 048
     Dates: start: 20071029, end: 20071118
  2. ADVIL LIQUI-GELS [Concomitant]
     Indication: HEADACHE
     Route: 065
  3. MOTRIN [Concomitant]
     Indication: HEADACHE
     Route: 065
  4. THYROID [Concomitant]
     Route: 065
     Dates: start: 20070101
  5. AZITROMYCIN [Concomitant]
     Route: 065
     Dates: start: 20080201, end: 20090115
  6. ST. JOHN'S WORT [Concomitant]
     Route: 065
     Dates: start: 20060101

REACTIONS (3)
  - PULMONARY EMBOLISM [None]
  - THROMBOSIS [None]
  - DYSPNOEA [None]
